FAERS Safety Report 7995009-5 (Version None)
Quarter: 2011Q4

REPORT INFORMATION
  Report Type: 
  Country: None (occurrence: None)
  Receive Date: 20111220
  Receipt Date: 20111208
  Transmission Date: 20120403
  Serious: Yes (Death, Hospitalization)
  Sender: FDA-Public Use
  Company Number: US-AMGEN-USASP2011041708

PATIENT
  Age: 65 Year
  Sex: Male
  Weight: 75.283 kg

DRUGS (9)
  1. VITAMIN B12                        /00056201/ [Concomitant]
  2. ARANESP [Suspect]
     Indication: PRODUCT USED FOR UNKNOWN INDICATION
     Dosage: UNK
     Dates: start: 20110503
  3. ALIMTA [Concomitant]
     Dosage: UNK
     Dates: start: 20110329, end: 20110719
  4. CALCIUM [Concomitant]
  5. KYTRIL [Concomitant]
     Dosage: UNK
     Dates: start: 20110329, end: 20110719
  6. DECADRON [Concomitant]
     Dosage: UNK
     Dates: start: 20110329, end: 20110719
  7. NEULASTA [Suspect]
     Indication: PRODUCT USED FOR UNKNOWN INDICATION
     Dosage: UNK
     Dates: start: 20110330, end: 20110720
  8. AVASTIN [Concomitant]
     Dosage: UNK
     Dates: start: 20110903, end: 20110719
  9. XGEVA [Suspect]
     Indication: METASTASES TO BONE
     Dosage: 120 MG, UNK
     Route: 042
     Dates: start: 20110720, end: 20110720

REACTIONS (4)
  - INCORRECT ROUTE OF DRUG ADMINISTRATION [None]
  - PANCYTOPENIA [None]
  - RENAL FAILURE ACUTE [None]
  - HYPOCALCAEMIA [None]
